FAERS Safety Report 10156761 (Version 1)
Quarter: 2014Q2

REPORT INFORMATION
  Report Type: Spontaneous
  Country: GB (occurrence: None)
  Receive Date: 20140505
  Receipt Date: 20140505
  Transmission Date: 20141212
  Serious: Yes (Disabling)
  Sender: FDA-Public Use
  Company Number: 2014AP002750

PATIENT
  Age: 69 Year
  Sex: Male
  Weight: 95 kg

DRUGS (7)
  1. PERINDOPRIL ERBUMINE [Suspect]
     Indication: HYPERTENSION
     Route: 048
     Dates: start: 20140114, end: 20140331
  2. AMLODIPINE (AMLODIPINE) TABLET [Concomitant]
  3. BUDESONIDE (BUDESONIDE) [Concomitant]
  4. CO CODAMOL (CODEINE PHOSPHATE, PARACETAMOL) [Concomitant]
  5. FINASTERIDE (FINASTERIDE) TABLET [Concomitant]
  6. SIMVASTATIN (SIMVASTATIN) TABLET [Concomitant]
  7. TAMSULOSIN (TAMSULOSIN) [Concomitant]

REACTIONS (1)
  - Deafness unilateral [None]
